FAERS Safety Report 14482807 (Version 1)
Quarter: 2018Q1

REPORT INFORMATION
  Report Type: Other
  Country: IE (occurrence: IE)
  Receive Date: 20180203
  Receipt Date: 20180203
  Transmission Date: 20180509
  Serious: Yes (Death, Other)
  Sender: FDA-Public Use
  Company Number: IE-MACLEODS PHARMACEUTICALS US LTD-MAC2018009169

PATIENT

DRUGS (2)
  1. BOSENTAN. [Suspect]
     Active Substance: BOSENTAN
     Indication: PULMONARY ARTERIAL PRESSURE INCREASED
     Dosage: UNK
     Route: 065
  2. SILDENAFIL FILM COATED TABLET [Suspect]
     Active Substance: SILDENAFIL
     Indication: PULMONARY ARTERIAL HYPERTENSION
     Dosage: UNK
     Route: 048

REACTIONS (3)
  - Endothelial dysfunction [Unknown]
  - Drug ineffective [Fatal]
  - Coronary artery disease [Unknown]
